FAERS Safety Report 8470946-6 (Version None)
Quarter: 2012Q2

REPORT INFORMATION
  Report Type: 
  Country: None (occurrence: None)
  Receive Date: 20120323
  Receipt Date: 20111121
  Transmission Date: 20120825
  Serious: Yes (Other)
  Sender: FDA-Public Use
  Company Number: 163-21880-11082784

PATIENT
  Age: 79 Year
  Sex: Female

DRUGS (2)
  1. LENALIDOMIDE [Suspect]
     Indication: MULTIPLE MYELOMA
     Dosage: 15 MG, DAILY X 21 THEN 7 DAYS OFF, PO, 15 MG, DAILY X 21 THEN 7 DAYS OFF, PO
     Route: 048
     Dates: start: 20101220, end: 20110817
  2. LENALIDOMIDE [Suspect]
     Indication: MULTIPLE MYELOMA
     Dosage: 15 MG, DAILY X 21 THEN 7 DAYS OFF, PO, 15 MG, DAILY X 21 THEN 7 DAYS OFF, PO
     Route: 048
     Dates: start: 20111005

REACTIONS (2)
  - FULL BLOOD COUNT ABNORMAL [None]
  - ANAEMIA [None]
